FAERS Safety Report 21895826 (Version 1)
Quarter: 2023Q1

REPORT INFORMATION
  Report Type: Spontaneous
  Country: US (occurrence: US)
  Receive Date: 20230123
  Receipt Date: 20230123
  Transmission Date: 20230417
  Serious: No
  Sender: FDA-Public Use
  Company Number: US-GLAXOSMITHKLINE-US2023AMR007406

PATIENT
  Sex: Female
  Weight: 50 kg

DRUGS (2)
  1. ZEJULA [Suspect]
     Active Substance: NIRAPARIB
     Indication: Ovarian cancer
     Dosage: 200 MG, QD
     Route: 048
     Dates: start: 202209
  2. ZEJULA [Suspect]
     Active Substance: NIRAPARIB
     Dosage: 1 DF, QD
     Route: 048

REACTIONS (2)
  - Full blood count abnormal [Unknown]
  - Constipation [Unknown]
